FAERS Safety Report 7776545-3 (Version None)
Quarter: 2011Q3

REPORT INFORMATION
  Report Type: 
  Country: None (occurrence: None)
  Receive Date: 20110926
  Receipt Date: 20110915
  Transmission Date: 20111222
  Serious: Yes (Hospitalization)
  Sender: FDA-Public Use
  Company Number: GB-US-EMD SERONO, INC.-7083340

PATIENT
  Sex: Female

DRUGS (7)
  1. QUETIAPINE [Concomitant]
  2. OMEGA THREE [Concomitant]
  3. MULTI-VITAMIN [Concomitant]
  4. SELENIUM [Concomitant]
  5. CITALOPRAM [Concomitant]
  6. REBIF [Suspect]
     Indication: PRODUCT USED FOR UNKNOWN INDICATION
  7. TUMERIC [Concomitant]

REACTIONS (1)
  - SUICIDAL IDEATION [None]
